FAERS Safety Report 9721545 (Version 1)
Quarter: 2013Q4

REPORT INFORMATION
  Report Type: Report from Study
  Country: BR (occurrence: BR)
  Receive Date: 20131130
  Receipt Date: 20131130
  Transmission Date: 20140711
  Serious: Yes (Hospitalization, Other)
  Sender: FDA-Public Use
  Company Number: PHHY2013BR138690

PATIENT
  Sex: Female
  Weight: 65 kg

DRUGS (1)
  1. FORASEQ [Suspect]
     Indication: ASTHMA
     Dosage: UNK UKN, BID

REACTIONS (5)
  - Cerebrovascular accident [Recovering/Resolving]
  - Lung disorder [Recovering/Resolving]
  - Cardiac disorder [Recovering/Resolving]
  - Bladder disorder [Recovering/Resolving]
  - Pneumonia [Recovering/Resolving]
